FAERS Safety Report 19813632 (Version 2)
Quarter: 2022Q1

REPORT INFORMATION
  Report Type: Report from Study
  Country: CA (occurrence: CA)
  Receive Date: 20210909
  Receipt Date: 20220119
  Transmission Date: 20220423
  Serious: Yes (Other)
  Sender: FDA-Public Use
  Company Number: CA-ABBVIE-21K-028-4072347-00

PATIENT
  Sex: Female

DRUGS (3)
  1. RINVOQ [Suspect]
     Active Substance: UPADACITINIB
     Indication: Rheumatoid arthritis
     Route: 048
     Dates: start: 20210221
  2. RINVOQ [Suspect]
     Active Substance: UPADACITINIB
     Route: 048
  3. VOLTAREN [Concomitant]
     Active Substance: DICLOFENAC SODIUM
     Indication: Product used for unknown indication
     Dates: end: 2021

REACTIONS (8)
  - Ligament sprain [Recovering/Resolving]
  - Back disorder [Unknown]
  - Burns second degree [Unknown]
  - Infection susceptibility increased [Unknown]
  - Arthralgia [Recovered/Resolved]
  - Inflammation [Unknown]
  - Pain [Recovering/Resolving]
  - Arthralgia [Unknown]

NARRATIVE: CASE EVENT DATE: 20210101
